FAERS Safety Report 21690313 (Version 1)
Quarter: 2022Q4

REPORT INFORMATION
  Report Type: Spontaneous
  Country: US (occurrence: None)
  Receive Date: 20221206
  Receipt Date: 20221206
  Transmission Date: 20230112
  Serious: Yes (Hospitalization)
  Sender: FDA-Public Use
  Company Number: None

PATIENT
  Age: 32 Year
  Sex: Male
  Weight: 72.4 kg

DRUGS (2)
  1. CARBOPLATIN [Suspect]
     Active Substance: CARBOPLATIN
     Dates: end: 20221101
  2. ETOPOSIDE [Suspect]
     Active Substance: ETOPOSIDE
     Dates: end: 20221101

REACTIONS (6)
  - Febrile neutropenia [None]
  - Diarrhoea [None]
  - Nausea [None]
  - Vomiting [None]
  - Staphylococcal bacteraemia [None]
  - Allogenic stem cell transplantation [None]

NARRATIVE: CASE EVENT DATE: 20221109
